FAERS Safety Report 21274967 (Version 1)
Quarter: 2022Q3

REPORT INFORMATION
  Report Type: Spontaneous
  Country: US (occurrence: US)
  Receive Date: 20220831
  Receipt Date: 20220831
  Transmission Date: 20221027
  Serious: No
  Sender: FDA-Public Use
  Company Number: US-AMERICAN REGENT INC-2021002448

PATIENT
  Age: 36 Year
  Sex: Male

DRUGS (3)
  1. FERRIC CARBOXYMALTOSE [Suspect]
     Active Substance: FERRIC CARBOXYMALTOSE
     Indication: Product used for unknown indication
     Dosage: 750 MILLIGRAM IN 0.9% SODIUM CHLORIDE 250 ML
     Route: 042
     Dates: start: 20210729, end: 20210729
  2. FERRIC CARBOXYMALTOSE [Suspect]
     Active Substance: FERRIC CARBOXYMALTOSE
     Dosage: 750 MILLIGRAM IN 0.9% SODIUM CHLORIDE 250 ML
     Route: 042
     Dates: start: 20210805, end: 20210805
  3. DIPHENHYDRAMINE [Concomitant]
     Active Substance: DIPHENHYDRAMINE
     Indication: Premedication
     Dosage: 25 MILLIGRAM
     Route: 042
     Dates: start: 20210805, end: 20210805

REACTIONS (3)
  - Rash [Unknown]
  - Urticaria [Unknown]
  - Flushing [Unknown]

NARRATIVE: CASE EVENT DATE: 20210729
